FAERS Safety Report 4928267-1 (Version None)
Quarter: 2006Q1

REPORT INFORMATION
  Report Type: 
  Country: None (occurrence: None)
  Receive Date: 20060127
  Receipt Date: 20051215
  Transmission Date: 20060701
  Serious: Yes (Other)
  Sender: FDA-Public Use
  Company Number: 2005169389

PATIENT
  Age: 61 Year
  Sex: Female
  Weight: 95.2554 kg

DRUGS (4)
  1. LYRICA [Suspect]
     Indication: FIBROMYALGIA
     Dosage: 150 MG (75 MG, 2 IN 1 D)
     Dates: start: 20051101
  2. CYMBALTA [Suspect]
     Indication: ANXIETY
     Dosage: 40 MG (20 MG, 2 IN 1 D)
     Dates: start: 20051214
  3. BENICAR [Concomitant]
  4. ATENOLOL [Concomitant]

REACTIONS (3)
  - ANXIETY [None]
  - INSOMNIA [None]
  - OEDEMA [None]
